FAERS Safety Report 8799148 (Version 1)
Quarter: 2012Q4

REPORT INFORMATION
  Report Type: Spontaneous
  Country: US (occurrence: None)
  Receive Date: 20120914
  Receipt Date: 20120914
  Transmission Date: 20130627
  Serious: Yes (Disabling, Other)
  Sender: FDA-Public Use
  Company Number: KAD201209-000427

PATIENT
  Sex: Male

DRUGS (2)
  1. RIBAVIRIN [Suspect]
     Indication: HEPATITIS C
     Dates: start: 201201, end: 201204
  2. PEGASYS [Suspect]
     Indication: HEPATITIS C
     Dates: start: 201201, end: 201204

REACTIONS (7)
  - Feeling abnormal [None]
  - Depression [None]
  - Visual impairment [None]
  - Fatigue [None]
  - Disturbance in attention [None]
  - Decreased appetite [None]
  - Gait disturbance [None]
